FAERS Safety Report 4466654-9 (Version None)
Quarter: 2004Q3

REPORT INFORMATION
  Report Type: 
  Country: None (occurrence: None)
  Receive Date: 20040930
  Receipt Date: 20040915
  Transmission Date: 20050211
  Serious: Yes (Other)
  Sender: FDA-Public Use
  Company Number: 200420629BWH

PATIENT
  Age: 39 Year
  Sex: Female

DRUGS (1)
  1. MYCELEX [Suspect]
     Indication: COUGH
     Dosage: ORAL
     Route: 048
     Dates: start: 20040912

REACTIONS (7)
  - CAUSTIC INJURY [None]
  - CONVULSION [None]
  - GASTRIC DISORDER [None]
  - GENITAL PRURITUS FEMALE [None]
  - OESOPHAGEAL DISORDER [None]
  - TONGUE DISORDER [None]
  - VOMITING [None]
